FAERS Safety Report 17587535 (Version 1)
Quarter: 2020Q1

REPORT INFORMATION
  Report Type: Spontaneous
  Country: US (occurrence: US)
  Receive Date: 20200326
  Receipt Date: 20200326
  Transmission Date: 20200409
  Serious: Yes (Hospitalization, Other)
  Sender: FDA-Public Use
  Company Number: US-PURDUE-USA-2020-0150581

PATIENT
  Sex: Female

DRUGS (13)
  1. BUTRANS [Suspect]
     Active Substance: BUPRENORPHINE
     Indication: PRODUCT USED FOR UNKNOWN INDICATION
     Route: 062
  2. VICODIN [Suspect]
     Active Substance: ACETAMINOPHEN\HYDROCODONE BITARTRATE
     Indication: PRODUCT USED FOR UNKNOWN INDICATION
     Route: 048
  3. HYDROCODONE BITARTRATE/ACETAMINOPHEN [Suspect]
     Active Substance: ACETAMINOPHEN\HYDROCODONE BITARTRATE
     Indication: PRODUCT USED FOR UNKNOWN INDICATION
     Dosage: 10/325 MG, UNK
     Route: 048
  4. BUPRENORPHINE TRANSDERMAL PATCH (SIMILAR TO NDA 21-306) [Suspect]
     Active Substance: BUPRENORPHINE
     Indication: PRODUCT USED FOR UNKNOWN INDICATION
     Route: 048
  5. MORPHINE SULFATE EXTENDED-RELEASE TABLETS (RHODES 74-769) [Suspect]
     Active Substance: MORPHINE SULFATE
     Indication: PRODUCT USED FOR UNKNOWN INDICATION
     Route: 048
  6. PALLADONE [Suspect]
     Active Substance: HYDROMORPHONE HYDROCHLORIDE
     Indication: PRODUCT USED FOR UNKNOWN INDICATION
     Route: 048
  7. LISINOPRIL. [Concomitant]
     Active Substance: LISINOPRIL
     Indication: PRODUCT USED FOR UNKNOWN INDICATION
     Dosage: 2.5 MG, DAILY
     Route: 048
  8. RYZOLT [Suspect]
     Active Substance: TRAMADOL HYDROCHLORIDE
     Indication: PRODUCT USED FOR UNKNOWN INDICATION
     Route: 065
  9. LORAZEPAM. [Concomitant]
     Active Substance: LORAZEPAM
     Indication: ANXIETY
     Dosage: 1 MG, HS
     Route: 048
  10. DHC PLUS [Suspect]
     Active Substance: ACETAMINOPHEN\CAFFEINE\DIHYDROCODEINE BITARTRATE
     Indication: PRODUCT USED FOR UNKNOWN INDICATION
     Route: 065
  11. MS CONTIN [Suspect]
     Active Substance: MORPHINE SULFATE
     Indication: PRODUCT USED FOR UNKNOWN INDICATION
     Route: 048
  12. TRAMADOL. [Suspect]
     Active Substance: TRAMADOL
     Indication: PRODUCT USED FOR UNKNOWN INDICATION
     Route: 048
  13. NORCO [Suspect]
     Active Substance: ACETAMINOPHEN\HYDROCODONE BITARTRATE
     Indication: PRODUCT USED FOR UNKNOWN INDICATION
     Route: 048

REACTIONS (33)
  - Tremor [Unknown]
  - Tooth loss [Unknown]
  - Drug abuse [Unknown]
  - Intestinal obstruction [Unknown]
  - Infection [Unknown]
  - Drug withdrawal syndrome [Unknown]
  - Headache [Unknown]
  - Loss of personal independence in daily activities [Unknown]
  - Vision blurred [Unknown]
  - Decreased appetite [Unknown]
  - Abdominal pain upper [Unknown]
  - Liver disorder [Unknown]
  - Memory impairment [Unknown]
  - Hyperhidrosis [Unknown]
  - Heart rate increased [Unknown]
  - Drug dependence [Unknown]
  - Disturbance in attention [Unknown]
  - Fatigue [Unknown]
  - Gait disturbance [Unknown]
  - Feeling of body temperature change [Unknown]
  - Unevaluable event [Unknown]
  - Depression [Unknown]
  - Musculoskeletal stiffness [Unknown]
  - Mood swings [Unknown]
  - Renal disorder [Unknown]
  - Gastrointestinal disorder [Not Recovered/Not Resolved]
  - Overdose [Unknown]
  - Bowel movement irregularity [Unknown]
  - Pain [Unknown]
  - Pyrexia [None]
  - Apathy [Unknown]
  - Constipation [Unknown]
  - Dental caries [Unknown]
